FAERS Safety Report 9476041 (Version 2)
Quarter: 2013Q4

REPORT INFORMATION
  Report Type: Spontaneous
  Country: JP (occurrence: None)
  Receive Date: 20130821
  Receipt Date: 20131002
  Transmission Date: 20140711
  Serious: Yes (Other)
  Sender: FDA-Public Use
  Company Number: ABR_01076_2013

PATIENT
  Age: 54 Year
  Sex: Male
  Weight: 45.4 kg

DRUGS (1)
  1. GLIADEL [Suspect]
     Indication: MALIGNANT GLIOMA
     Dosage: INTRACEREBRAL
     Dates: start: 20130226, end: 20130322

REACTIONS (4)
  - Brain abscess [None]
  - Brain oedema [None]
  - Pneumocephalus [None]
  - Disease progression [None]
